FAERS Safety Report 6106289-5 (Version None)
Quarter: 2009Q1

REPORT INFORMATION
  Report Type: 
  Country: None (occurrence: None)
  Receive Date: 20090306
  Receipt Date: 20090226
  Transmission Date: 20090719
  Serious: Yes (Hospitalization, Other)
  Sender: FDA-Public Use
  Company Number: PHHY2009JP06169

PATIENT
  Age: 48 Year
  Sex: Male

DRUGS (4)
  1. SIMULECT [Suspect]
     Indication: RENAL TRANSPLANT
     Route: 042
  2. TACROLIMUS [Suspect]
     Indication: RENAL TRANSPLANT
  3. MYCOPHENOLATE MOFETIL [Suspect]
     Indication: RENAL TRANSPLANT
  4. STEROIDS NOS [Suspect]
     Dosage: PULSE THERAPY

REACTIONS (8)
  - CYTOMEGALOVIRUS CHORIORETINITIS [None]
  - CYTOMEGALOVIRUS VIRAEMIA [None]
  - KIDNEY TRANSPLANT REJECTION [None]
  - LUNG DISORDER [None]
  - MENINGITIS CRYPTOCOCCAL [None]
  - NEUROGENIC BLADDER [None]
  - NOCARDIOSIS [None]
  - VISUAL ACUITY REDUCED [None]
